FAERS Safety Report 9364128 (Version 1)
Quarter: 2013Q2

REPORT INFORMATION
  Report Type: Spontaneous
  Country: US (occurrence: US)
  Receive Date: 20130624
  Receipt Date: 20130624
  Transmission Date: 20140414
  Serious: No
  Sender: FDA-Public Use
  Company Number: US-B.I. PHARMACEUTICALS,INC./RIDGEFIELD-2013-BI-17106BP

PATIENT
  Sex: Female
  Weight: 47.63 kg

DRUGS (5)
  1. SPIRIVA [Suspect]
     Route: 055
     Dates: start: 20130611, end: 20130611
  2. NEBULIZER [Concomitant]
     Indication: CHRONIC OBSTRUCTIVE PULMONARY DISEASE
  3. HYDROCORTISONE [Concomitant]
     Indication: ADRENAL INSUFFICIENCY
     Dosage: 20 MG
  4. BENADRYL [Concomitant]
     Indication: HYPERSENSITIVITY
  5. MUCINEX [Concomitant]
     Indication: HYPERSENSITIVITY

REACTIONS (1)
  - Blood pressure increased [Unknown]
